FAERS Safety Report 7076346-8 (Version None)
Quarter: 2010Q4

REPORT INFORMATION
  Report Type: 
  Country: None (occurrence: None)
  Receive Date: 20101020
  Receipt Date: 20100928
  Transmission Date: 20110411
  Serious: Yes (Hospitalization)
  Sender: FDA-Public Use
  Company Number: US-145085

PATIENT
  Age: 87 Year
  Sex: Male
  Weight: 69.8539 kg

DRUGS (1)
  1. WINRHO SDF LIQUID [Suspect]
     Indication: IDIOPATHIC THROMBOCYTOPENIC PURPURA
     Dosage: (50.1 ?G/KG TOTAL INTRAVENOUS)
     Route: 042
     Dates: start: 20100909, end: 20100909

REACTIONS (2)
  - INTRAVASCULAR HAEMOLYSIS [None]
  - RENAL FAILURE [None]
